FAERS Safety Report 16642362 (Version 2)
Quarter: 2019Q4

REPORT INFORMATION
  Report Type: Spontaneous
  Country: US (occurrence: US)
  Receive Date: 20190729
  Receipt Date: 20191030
  Transmission Date: 20200122
  Serious: Yes (Other)
  Sender: FDA-Public Use
  Company Number: US-009507513-1907USA013212

PATIENT
  Age: 76 Year
  Sex: Male

DRUGS (3)
  1. ZERBAXA [Suspect]
     Active Substance: CEFTOLOZANE SULFATE\TAZOBACTAM SODIUM
     Indication: OSTEOMYELITIS BACTERIAL
     Dosage: 3 GRAM EVERY 8H
  2. TIGECYCLINE. [Suspect]
     Active Substance: TIGECYCLINE
     Indication: OSTEOMYELITIS BACTERIAL
     Dosage: 100 MILLIGRAM EVERY 12H
  3. TIGECYCLINE. [Suspect]
     Active Substance: TIGECYCLINE
     Dosage: 50 MILLIGRAM EVERY 12H
     Route: 042

REACTIONS (4)
  - Thrombocytopenia [Unknown]
  - Alanine aminotransferase increased [Not Recovered/Not Resolved]
  - Off label use [Unknown]
  - Aspartate aminotransferase increased [Not Recovered/Not Resolved]
